FAERS Safety Report 6676871-5 (Version None)
Quarter: 2010Q2

REPORT INFORMATION
  Report Type: 
  Country: None (occurrence: None)
  Receive Date: 20100412
  Receipt Date: 20100402
  Transmission Date: 20101027
  Serious: Yes (Death)
  Sender: FDA-Public Use
  Company Number: US-ROCHE-696132

PATIENT
  Sex: Female
  Weight: 68.9 kg

DRUGS (25)
  1. BEVACIZUMAB [Suspect]
     Indication: NON-SMALL CELL LUNG CANCER
     Dosage: 15 MG/KG, Q21D
     Route: 042
     Dates: start: 20090928
  2. IXABEPILONE [Suspect]
     Indication: NON-SMALL CELL LUNG CANCER
     Dosage: 30 MG/M2, Q21D
     Route: 042
     Dates: start: 20090928
  3. CARBOPLATIN [Suspect]
     Indication: NON-SMALL CELL LUNG CANCER
     Dosage: 6 AUC, Q21D
     Route: 042
     Dates: start: 20090928
  4. LORAZEPAM [Concomitant]
  5. ONDANSETRON [Concomitant]
     Dosage: 20 MG, UNK
     Route: 042
     Dates: start: 20091020
  6. DEXAMETHASONE [Concomitant]
     Dosage: 20 MG, UNK
     Route: 042
     Dates: start: 20091020
  7. DIPHENHYDRAMINE HYDROCHLORIDE [Concomitant]
     Dosage: 50 MG, UNK
     Route: 042
     Dates: start: 20091020
  8. FAMOTIDINE [Concomitant]
     Dosage: 20 MG, UNK
     Route: 042
     Dates: start: 20091020
  9. PROVENTIL [Concomitant]
     Dosage: 2.5 MG, UNK
  10. NORVASC [Concomitant]
     Dosage: 5 MG, QD
     Route: 048
     Dates: start: 20090913
  11. OXYCONTIN [Concomitant]
     Dosage: 10 MG, BID
     Route: 048
     Dates: end: 20091106
  12. SODIUM CHLORIDE [Concomitant]
     Dosage: 1000 ML, UNK
     Route: 042
  13. XANAX [Concomitant]
     Route: 048
     Dates: start: 20090820
  14. DIPHENHIST [Concomitant]
     Dosage: 12.5 MG, PRN
     Route: 048
  15. HALDOL [Concomitant]
     Route: 042
  16. ROXANOL [Concomitant]
     Route: 048
  17. PERCOCET [Concomitant]
     Route: 048
     Dates: start: 20091017
  18. PROCHLORPERAZINE [Concomitant]
     Dosage: 10 MG, PRN
     Route: 048
  19. SENNA [Concomitant]
     Dosage: 8.6 MG, PRN
     Route: 048
  20. TEMAZEPAM [Concomitant]
     Dosage: 15 MG, QHS
     Route: 048
     Dates: start: 20091016
  21. COMPAZINE [Concomitant]
     Dosage: 25 MG, PRN
     Dates: start: 20090919
  22. MORPHINE [Concomitant]
     Dates: start: 20090919
  23. BENADRYL [Concomitant]
     Dosage: 25 MG, QHS
     Dates: end: 20091106
  24. COLACE [Concomitant]
     Dosage: 100 MG, QD
     Dates: start: 20091006
  25. RITALIN [Concomitant]
     Dosage: 10 MG, QD
     Dates: end: 20091106

REACTIONS (1)
  - DISEASE PROGRESSION [None]
